FAERS Safety Report 23060260 (Version 1)
Quarter: 2023Q4

REPORT INFORMATION
  Report Type: Spontaneous
  Country: US (occurrence: None)
  Receive Date: 20231012
  Receipt Date: 20231012
  Transmission Date: 20240109
  Serious: Yes (Life-Threatening)
  Sender: FDA-Public Use
  Company Number: 2023A232586

PATIENT
  Weight: 1.9 kg

DRUGS (1)
  1. TEZEPELUMAB [Suspect]
     Active Substance: TEZEPELUMAB
     Route: 064

REACTIONS (4)
  - Irregular breathing [Unknown]
  - Disturbance of thermoregulation of newborn [Unknown]
  - Foetal exposure during pregnancy [Unknown]
  - Premature baby [Unknown]
